FAERS Safety Report 4728257-8 (Version None)
Quarter: 2005Q3

REPORT INFORMATION
  Report Type: 
  Country: None (occurrence: None)
  Receive Date: 20050727
  Receipt Date: 20050725
  Transmission Date: 20060218
  Serious: Yes (Death)
  Sender: FDA-Public Use
  Company Number: 215471

PATIENT
  Age: 75 Year
  Sex: Female
  Weight: 57 kg

DRUGS (16)
  1. HERCEPTIN [Suspect]
     Indication: BREAST CANCER METASTATIC
     Dosage: INTRAVENOUS
     Route: 042
     Dates: start: 20050418
  2. DURAGESIC-100 [Suspect]
     Indication: DRUG USE FOR UNKNOWN INDICATION
     Dosage: 50 UG,
     Dates: start: 20050418
  3. TAXOTERE [Suspect]
     Indication: DRUG USE FOR UNKNOWN INDICATION
     Dosage: UNK, ; INTRAVENOUS
     Route: 042
     Dates: start: 20050418
  4. POLARAMINE [Concomitant]
  5. FUROSEMIDE [Concomitant]
  6. RANITIDINE HCL [Concomitant]
  7. SOLU-MEDROL [Concomitant]
  8. DUPHALAC [Concomitant]
  9. ZOLPIDEM TARTRATE [Concomitant]
  10. ATARAX [Concomitant]
  11. ZOLOFT [Concomitant]
  12. OMEPRAZOLE [Concomitant]
  13. POTASSIUM CHLORIDE [Concomitant]
  14. DEBRIDAT (TRIMEBUTINE MALEATE) [Concomitant]
  15. GELOX (MONTMORILLONITE, MAGNESIUM HYDROXIDE, ALUMINUM HYDROXIDE) [Concomitant]
  16. CORTANCYL (PREDNISONE) [Concomitant]

REACTIONS (4)
  - ABDOMINAL PAIN UPPER [None]
  - CARDIAC ARREST [None]
  - DYSPNOEA [None]
  - TACHYCARDIA [None]
